FAERS Safety Report 8678139 (Version 2)
Quarter: 2013Q3

REPORT INFORMATION
  Report Type: Spontaneous
  Country: US (occurrence: US)
  Receive Date: 20120723
  Receipt Date: 20130912
  Transmission Date: 20140515
  Serious: Yes (Hospitalization)
  Sender: FDA-Public Use
  Company Number: US-BAYER-2012-072419

PATIENT
  Age: 32 Year
  Sex: Female
  Weight: 87.53 kg

DRUGS (8)
  1. YAZ [Suspect]
     Dosage: UNK
     Dates: start: 20070411
  2. GIANVI [Suspect]
  3. ALBUTEROL INHALANT [Concomitant]
     Indication: DYSPNOEA
     Dosage: 2 PUFFS [EVERY] 4 HOURS P.R.N. (INTERPRETED AS -AS NEEDED)
  4. PULMICORT TURBOHALER [Concomitant]
     Route: 045
  5. ADVAIR DISKUS [Concomitant]
     Dosage: UNK
     Dates: start: 20100707
  6. ARIXTRA [Concomitant]
  7. MIRALAX [Concomitant]
  8. TYLENOL [Concomitant]

REACTIONS (2)
  - Pulmonary embolism [None]
  - Deep vein thrombosis [None]
